FAERS Safety Report 24547282 (Version 1)
Quarter: 2024Q4

REPORT INFORMATION
  Report Type: Spontaneous
  Country: PR (occurrence: PR)
  Receive Date: 20241025
  Receipt Date: 20241025
  Transmission Date: 20250115
  Serious: No
  Sender: BIOGEN
  Company Number: PR-BIOGEN-2024BI01287920

PATIENT
  Age: 34 Year
  Sex: Female
  Weight: 80.812 kg

DRUGS (1)
  1. TYSABRI [Suspect]
     Active Substance: NATALIZUMAB
     Indication: Multiple sclerosis
     Route: 050
     Dates: start: 202109, end: 20241019

REACTIONS (3)
  - Maternal exposure during pregnancy [Unknown]
  - Nausea [Unknown]
  - Vomiting [Unknown]

NARRATIVE: CASE EVENT DATE: 20240901
